FAERS Safety Report 8011338-3 (Version None)
Quarter: 2011Q4

REPORT INFORMATION
  Report Type: 
  Country: None (occurrence: None)
  Receive Date: 20111228
  Receipt Date: 20111228
  Transmission Date: 20120403
  Serious: No
  Sender: FDA-Public Use
  Company Number: None

PATIENT
  Age: 67 Year
  Sex: Female
  Weight: 67.585 kg

DRUGS (1)
  1. INTRON A [Suspect]
     Dosage: 20 MILLION UNITS/M2
     Route: 058

REACTIONS (3)
  - VISION BLURRED [None]
  - RETINAL ISCHAEMIA [None]
  - RETINAL EXUDATES [None]
